FAERS Safety Report 5699193-8 (Version None)
Quarter: 2008Q2

REPORT INFORMATION
  Report Type: 
  Country: None (occurrence: None)
  Receive Date: 20080407
  Receipt Date: 20080407
  Transmission Date: 20081010
  Serious: Yes (Hospitalization)
  Sender: FDA-Public Use
  Company Number: None

PATIENT
  Age: 60 Year
  Sex: Male

DRUGS (2)
  1. CLOPIDOGREL [Suspect]
     Indication: CORONARY ARTERIAL STENT INSERTION
     Dosage: 75 MG EVERY DAY PO
     Route: 048
     Dates: start: 20071126, end: 20080222
  2. ASPIRIN [Suspect]
     Indication: CORONARY ARTERIAL STENT INSERTION
     Dosage: 325 MG HS PO
     Route: 048
     Dates: start: 20071115, end: 20080205

REACTIONS (1)
  - THROMBOCYTOPENIA [None]
